FAERS Safety Report 22113815 (Version 2)
Quarter: 2023Q1

REPORT INFORMATION
  Report Type: Spontaneous
  Country: JP (occurrence: JP)
  Receive Date: 20230320
  Receipt Date: 20230324
  Transmission Date: 20230417
  Serious: Yes (Other)
  Sender: FDA-Public Use
  Company Number: JP-ASTELLAS-2021JP014460

PATIENT
  Age: 78 Year
  Sex: Male

DRUGS (21)
  1. ROXADUSTAT [Suspect]
     Active Substance: ROXADUSTAT
     Indication: Nephrogenic anaemia
     Dosage: 50 MG, THRICE WEEKLY, TUESDAY, THURSDAY, SATURDAY (ONCE DAILY, AFTER BREAKFAST)
     Route: 048
     Dates: start: 20210510
  2. ROXADUSTAT [Suspect]
     Active Substance: ROXADUSTAT
     Dosage: 50 MG, TWICE WEEKLY (ONCE DAILY, AFTER BREAKFAST)
     Route: 048
     Dates: start: 20210720
  3. ROXADUSTAT [Suspect]
     Active Substance: ROXADUSTAT
     Dosage: 50 MG, ONCE WEEKLY, ONCE DAILY, AFTER BREAKFAST, SATURDAY, NOT DAY AFTER DAY
     Route: 048
     Dates: start: 20220409
  4. DEGARELIX [Suspect]
     Active Substance: DEGARELIX
     Indication: Prostate cancer
     Route: 058
     Dates: start: 20210118, end: 20210118
  5. DEGARELIX [Suspect]
     Active Substance: DEGARELIX
     Route: 058
     Dates: start: 20210215, end: 20220521
  6. VESICARE [Suspect]
     Active Substance: SOLIFENACIN SUCCINATE
     Indication: Micturition urgency
     Dosage: 5 UNKNOWN UNITS, ONCE DAILY
     Route: 048
     Dates: start: 20220104, end: 20220226
  7. CASODEX [Concomitant]
     Active Substance: BICALUTAMIDE
     Indication: Prostate cancer
     Dosage: 80 MG, ONCE DAILY, AFTER BREAKFAST
     Route: 048
     Dates: start: 20210104
  8. MIRABEGRON [Concomitant]
     Active Substance: MIRABEGRON
     Indication: Hypertonic bladder
     Dosage: 50 MG, ONCE DAILY, AFTER BREAKFAST
     Route: 048
     Dates: start: 20210315, end: 20220917
  9. IMIDAFENACIN [Concomitant]
     Active Substance: IMIDAFENACIN
     Indication: Hypertonic bladder
     Dosage: 0.1 MG, ONCE DAILY, AFTER BREAKFAST
     Route: 048
     Dates: start: 20210412, end: 20210705
  10. IMIDAFENACIN [Concomitant]
     Active Substance: IMIDAFENACIN
     Dosage: 0.1 MG, ONCE DAILY
     Route: 048
     Dates: start: 20210904, end: 20211228
  11. TOVIAZ [Concomitant]
     Active Substance: FESOTERODINE FUMARATE
     Indication: Product used for unknown indication
     Dosage: 4 UNK, ONCE DAILY
     Route: 048
     Dates: start: 20210705, end: 20210904
  12. CARVEDILOL [Concomitant]
     Active Substance: CARVEDILOL
     Indication: Product used for unknown indication
     Dosage: UNK UNK, UNKNOWN FREQ.
     Route: 065
  13. DABIGATRAN ETEXILATE MESYLATE [Concomitant]
     Active Substance: DABIGATRAN ETEXILATE MESYLATE
     Indication: Product used for unknown indication
     Dosage: UNK UNK, UNKNOWN FREQ.
     Route: 065
  14. CERCINE [Concomitant]
     Active Substance: DIAZEPAM
     Indication: Product used for unknown indication
     Dosage: UNK UNK, UNKNOWN FREQ.
     Route: 065
  15. OLOPATADINE HYDROCHLORIDE [Concomitant]
     Active Substance: OLOPATADINE HYDROCHLORIDE
     Indication: Product used for unknown indication
     Dosage: UNK UNK, UNKNOWN FREQ.
     Route: 048
  16. OLMESARTAN MEDOXOMIL [Concomitant]
     Active Substance: OLMESARTAN MEDOXOMIL
     Indication: Product used for unknown indication
     Dosage: UNK UNK, UNKNOWN FREQ.
     Route: 048
  17. SENNOSIDES [Concomitant]
     Active Substance: SENNOSIDES
     Indication: Product used for unknown indication
     Dosage: UNK UNK, UNKNOWN FREQ.
     Route: 048
  18. AMLODIPINE BESYLATE [Concomitant]
     Active Substance: AMLODIPINE BESYLATE
     Indication: Product used for unknown indication
     Dosage: UNK UNK, UNKNOWN FREQ.
     Route: 048
  19. METILDIGOXIN [Concomitant]
     Active Substance: METILDIGOXIN
     Indication: Product used for unknown indication
     Dosage: UNK UNK, UNKNOWN FREQ.
     Route: 048
  20. LANSOPRAZOLE [Concomitant]
     Active Substance: LANSOPRAZOLE
     Indication: Product used for unknown indication
     Dosage: UNK UNK, UNKNOWN FREQ.
     Route: 048
  21. GLYCOSAMINOGLYCANS [Concomitant]
     Active Substance: GLYCOSAMINOGLYCANS
     Indication: Product used for unknown indication
     Dosage: UNK UNK, TWICE DAILY, FOR WHOLE BODY
     Route: 050

REACTIONS (8)
  - Renal impairment [Recovered/Resolved]
  - Induration [Recovered/Resolved]
  - Nephrogenic anaemia [Recovered/Resolved]
  - Hypertonic bladder [Not Recovered/Not Resolved]
  - Insomnia [Recovered/Resolved]
  - Urinary retention [Recovered/Resolved]
  - Thirst [Recovered/Resolved]
  - Off label use [Unknown]

NARRATIVE: CASE EVENT DATE: 20210315
